FAERS Safety Report 5293691-7 (Version None)
Quarter: 2007Q2

REPORT INFORMATION
  Report Type: 
  Country: None (occurrence: None)
  Receive Date: 20070405
  Receipt Date: 20070125
  Transmission Date: 20071010
  Serious: Yes (Death, Life-Threatening, Hospitalization)
  Sender: FDA-Public Use
  Company Number: 2007SP005557

PATIENT
  Age: 73 Year
  Sex: Male

DRUGS (10)
  1. BETAMETHASONE [Suspect]
     Indication: RHEUMATOID ARTHRITIS
     Dosage: 3 MG; QD; PO
     Route: 048
     Dates: start: 20050702
  2. ENBREL [Suspect]
     Indication: RHEUMATOID ARTHRITIS
     Dosage: 25 MG; BIW; SC
     Route: 058
     Dates: start: 20050510, end: 20050816
  3. METHYLPREDNISOLONE [Suspect]
     Indication: RHEUMATOID ARTHRITIS
     Dosage: 50 MG; QD; PO
     Route: 048
     Dates: start: 20050426, end: 20050519
  4. CYCLOPHOSPHAMIDE [Suspect]
     Indication: RHEUMATOID ARTHRITIS
     Dosage: 50 MG; QD; IV
     Route: 042
     Dates: start: 20050707
  5. AMPHOTERICIN B (CON.) [Concomitant]
  6. SODIUM ALGINATE (CON.) [Concomitant]
  7. MOBICOX (CON.) [Concomitant]
  8. BENAMBAX (CON.) [Concomitant]
  9. MAGNESIUM OXIDE (CON.) [Concomitant]
  10. ALLOID (CON.) [Concomitant]

REACTIONS (16)
  - ACUTE RESPIRATORY DISTRESS SYNDROME [None]
  - BLOOD CREATINE PHOSPHOKINASE INCREASED [None]
  - CARDIO-RESPIRATORY ARREST [None]
  - CYTOMEGALOVIRUS INFECTION [None]
  - DISSEMINATED INTRAVASCULAR COAGULATION [None]
  - LYMPHOCYTE PERCENTAGE DECREASED [None]
  - MULTI-ORGAN FAILURE [None]
  - NO THERAPEUTIC RESPONSE [None]
  - PNEUMOCYSTIS JIROVECI INFECTION [None]
  - PNEUMOCYSTIS JIROVECI PNEUMONIA [None]
  - PNEUMONIA [None]
  - PNEUMONIA CHLAMYDIAL [None]
  - PSEUDOMONAS INFECTION [None]
  - PULMONARY ALVEOLAR HAEMORRHAGE [None]
  - SPUTUM CULTURE POSITIVE [None]
  - STAPHYLOCOCCAL INFECTION [None]
